FAERS Safety Report 11582650 (Version 1)
Quarter: 2015Q4

REPORT INFORMATION
  Report Type: Spontaneous
  Country: US (occurrence: US)
  Receive Date: 20151001
  Receipt Date: 20151001
  Transmission Date: 20160304
  Serious: No
  Sender: FDA-Public Use
  Company Number: US-ROCHE-669303

PATIENT
  Age: 66 Year
  Sex: Female

DRUGS (2)
  1. PEGASYS [Suspect]
     Active Substance: PEGINTERFERON ALFA-2A
     Indication: HEPATITIS C
     Dosage: FORM: PRE- FILLED SYRINGE
     Route: 058
     Dates: start: 20091019, end: 20091218
  2. RIBAVIRIN. [Suspect]
     Active Substance: RIBAVIRIN
     Indication: HEPATITIS C
     Dosage: DIVIDED DOSES
     Route: 048
     Dates: start: 20091019, end: 20091218

REACTIONS (7)
  - Nausea [Unknown]
  - Decreased appetite [Unknown]
  - Rash [Not Recovered/Not Resolved]
  - Diarrhoea [Recovered/Resolved]
  - Abdominal pain [Unknown]
  - Viral load increased [Unknown]
  - Faeces discoloured [Not Recovered/Not Resolved]

NARRATIVE: CASE EVENT DATE: 20091019
